FAERS Safety Report 25169667 (Version 1)
Quarter: 2025Q2

REPORT INFORMATION
  Report Type: Spontaneous
  Country: US (occurrence: US)
  Receive Date: 20250407
  Receipt Date: 20250407
  Transmission Date: 20250717
  Serious: Yes (Other)
  Sender: INSUD PHARMA
  Company Number: US-INSUD PHARMA-2503US02542

PATIENT

DRUGS (1)
  1. TESTOSTERONE CYPIONATE [Suspect]
     Active Substance: TESTOSTERONE CYPIONATE
     Indication: Hypogonadism
     Route: 030

REACTIONS (11)
  - Dilated cardiomyopathy [Unknown]
  - Ventricular hypokinesia [Unknown]
  - Cerebral infarction [Unknown]
  - Mental status changes [Unknown]
  - Embolism [Unknown]
  - Acute myocardial infarction [Unknown]
  - Coronary artery occlusion [Unknown]
  - Cardiac ventricular thrombosis [Unknown]
  - Renal artery thrombosis [Unknown]
  - Peripheral artery thrombosis [Unknown]
  - Hypercoagulation [Unknown]
